FAERS Safety Report 9462771 (Version 1)
Quarter: 2013Q3

REPORT INFORMATION
  Report Type: Spontaneous
  Country: GB (occurrence: None)
  Receive Date: 20130814
  Receipt Date: 20130814
  Transmission Date: 20140515
  Serious: Yes (Other)
  Sender: FDA-Public Use
  Company Number: SYM-2013-07904

PATIENT
  Age: 54 Year
  Sex: Female

DRUGS (2)
  1. METRONIDAZOLE [Suspect]
     Indication: PROPHYLAXIS
     Dosage: 3 IN 1 D
     Route: 048
     Dates: start: 20130630, end: 20130702
  2. HERBAL PREPARATION [Concomitant]

REACTIONS (6)
  - Chromaturia [None]
  - Local swelling [None]
  - Paraesthesia [None]
  - Pruritus [None]
  - Rash macular [None]
  - Local swelling [None]
